FAERS Safety Report 8469726-7 (Version None)
Quarter: 2012Q2

REPORT INFORMATION
  Report Type: 
  Country: None (occurrence: None)
  Receive Date: 20120626
  Receipt Date: 20120621
  Transmission Date: 20120825
  Serious: Yes (Death)
  Sender: FDA-Public Use
  Company Number: US-PFIZER INC-2010020895

PATIENT
  Sex: Male
  Weight: 74.8 kg

DRUGS (3)
  1. CLINDAMYCIN [Concomitant]
     Dosage: UNK
     Dates: end: 20080427
  2. HYDROCODONE [Concomitant]
     Dosage: UNK
     Dates: end: 20080427
  3. CHANTIX [Suspect]
     Indication: SMOKING CESSATION THERAPY
     Dosage: UNK, FOR APPROXIMATELY ONE WEEK
     Route: 048
     Dates: start: 20080421, end: 20080401

REACTIONS (1)
  - COMPLETED SUICIDE [None]
